FAERS Safety Report 8997506 (Version 1)
Quarter: 2013Q1

REPORT INFORMATION
  Report Type: Spontaneous
  Country: ES (occurrence: ES)
  Receive Date: 20130104
  Receipt Date: 20130104
  Transmission Date: 20140127
  Serious: Yes (Other)
  Sender: FDA-Public Use
  Company Number: ES-ELI_LILLY_AND_COMPANY-ES201212006430

PATIENT
  Sex: Female

DRUGS (2)
  1. FORSTEO [Suspect]
     Indication: OSTEOPOROSIS
     Dosage: 20 UG, QD
     Route: 065
     Dates: start: 201008
  2. FORSTEO [Suspect]
     Dosage: 20 UG, QD
     Route: 065
     Dates: start: 201106

REACTIONS (2)
  - Bone neoplasm [Unknown]
  - Blood calcium increased [Unknown]
